FAERS Safety Report 5053572-0 (Version None)
Quarter: 2006Q3

REPORT INFORMATION
  Report Type: 
  Country: None (occurrence: None)
  Receive Date: 20060718
  Receipt Date: 20060529
  Transmission Date: 20061208
  Serious: No
  Sender: FDA-Public Use
  Company Number: ES-BRISTOL-MYERS SQUIBB COMPANY-13392402

PATIENT
  Age: 64 Year
  Sex: Female
  Weight: 82 kg

DRUGS (3)
  1. KARVEA [Suspect]
     Indication: HYPERTENSION
     Route: 048
     Dates: start: 20051201, end: 20051210
  2. KARVEA [Suspect]
     Route: 048
     Dates: start: 20051201, end: 20051210
  3. PARACETAMOL [Concomitant]
     Indication: PAIN

REACTIONS (2)
  - BACK PAIN [None]
  - MYALGIA [None]
